FAERS Safety Report 9920394 (Version 2)
Quarter: 2014Q1

REPORT INFORMATION
  Report Type: Spontaneous
  Country: US (occurrence: US)
  Receive Date: 20140224
  Receipt Date: 20140321
  Transmission Date: 20141002
  Serious: No
  Sender: FDA-Public Use
  Company Number: US-PFIZER INC-2014051798

PATIENT
  Sex: Female

DRUGS (3)
  1. CELEBREX [Suspect]
     Dosage: UNK
  2. ADVIL [Suspect]
     Indication: PAIN
     Dosage: UNK
  3. OXYCONTIN [Suspect]
     Indication: PAIN
     Dosage: UNK

REACTIONS (8)
  - Drug ineffective [Unknown]
  - Aphthous stomatitis [Unknown]
  - Skin ulcer [Unknown]
  - Blister [Unknown]
  - Burning sensation [Unknown]
  - Scar [Unknown]
  - Pain [Unknown]
  - Insomnia [Unknown]
